FAERS Safety Report 15124914 (Version 1)
Quarter: 2018Q3

REPORT INFORMATION
  Report Type: Spontaneous
  Country: US (occurrence: US)
  Receive Date: 20180710
  Receipt Date: 20180710
  Transmission Date: 20181010
  Serious: No
  Sender: FDA-Public Use
  Company Number: US-ACCORD-067486

PATIENT
  Age: 34 Year
  Sex: Female
  Weight: 80.74 kg

DRUGS (1)
  1. SPIRONOLACTONE ACCORD [Suspect]
     Active Substance: SPIRONOLACTONE
     Indication: HYPERTENSION

REACTIONS (6)
  - Product taste abnormal [Unknown]
  - Product odour abnormal [Unknown]
  - Hirsutism [Unknown]
  - Product substitution issue [Unknown]
  - Hot flush [Unknown]
  - Drug ineffective [Unknown]
